FAERS Safety Report 10391898 (Version 4)
Quarter: 2014Q3

REPORT INFORMATION
  Report Type: Report from Study
  Country: CA (occurrence: CA)
  Receive Date: 20140819
  Receipt Date: 20140902
  Transmission Date: 20150326
  Serious: Yes (Other)
  Sender: FDA-Public Use
  Company Number: PHHY2014CA042659

PATIENT
  Age: 58 Year
  Sex: Female

DRUGS (8)
  1. SANDOSTATIN LAR DEPOT [Suspect]
     Active Substance: OCTREOTIDE ACETATE
     Indication: OFF LABEL USE
  2. MORPHINE [Concomitant]
     Active Substance: MORPHINE
     Dosage: UNK UKN, UNK
  3. SANDOSTATIN LAR DEPOT [Suspect]
     Active Substance: OCTREOTIDE ACETATE
     Indication: METASTATIC NEOPLASM
  4. SANDOSTATIN [Suspect]
     Active Substance: OCTREOTIDE ACETATE
     Indication: OFF LABEL USE
  5. SANDOSTATIN LAR DEPOT [Suspect]
     Active Substance: OCTREOTIDE ACETATE
     Indication: OVARIAN CANCER
     Dosage: 20 MG, QMO
     Route: 030
     Dates: start: 20140326
  6. SANDOSTATIN [Suspect]
     Active Substance: OCTREOTIDE ACETATE
     Indication: OVARIAN CANCER
     Dosage: 100 UG, BID
     Route: 058
     Dates: start: 20140326
  7. SANDOSTATIN [Suspect]
     Active Substance: OCTREOTIDE ACETATE
     Indication: METASTATIC NEOPLASM
  8. MORPHINE [Concomitant]
     Active Substance: MORPHINE
     Dosage: UNK UKN, UNK

REACTIONS (5)
  - Dyspnoea [Unknown]
  - Malaise [Unknown]
  - Intestinal obstruction [Unknown]
  - Diarrhoea [Recovered/Resolved]
  - Pulmonary oedema [Unknown]

NARRATIVE: CASE EVENT DATE: 20140405
